FAERS Safety Report 5491925-7 (Version None)
Quarter: 2007Q4

REPORT INFORMATION
  Report Type: 
  Country: None (occurrence: None)
  Receive Date: 20071018
  Receipt Date: 20071018
  Transmission Date: 20080405
  Serious: Yes (Hospitalization, Other)
  Sender: FDA-Public Use
  Company Number: None

PATIENT
  Sex: Female
  Weight: 81.1939 kg

DRUGS (3)
  1. SULFAMETHOXAZOLE/TRIMETHOPRIM DS   800MG/160/MG [Suspect]
     Indication: URINARY TRACT INFECTION
     Dosage: 1 -ORIGINAL DOSAGE-  BID PO
     Route: 048
     Dates: start: 20070815, end: 20070818
  2. SULFAMETHOXAZOLE/ TRIMETHOPRIM DS    800MG/160MG [Suspect]
     Indication: STAPHYLOCOCCAL INFECTION
     Dosage: 2 -DOSAGE AFTER 09/30/07 ER- BID  PO
     Route: 048
     Dates: start: 20070912, end: 20071010
  3. ORTHO CYCLEN  METHYLPHENIDATE HYDROCHLORIDE [Concomitant]

REACTIONS (16)
  - ABDOMINAL PAIN [None]
  - ASTHENIA [None]
  - AUTOIMMUNE DISORDER [None]
  - BLOOD PRESSURE INCREASED [None]
  - CONFUSIONAL STATE [None]
  - DEHYDRATION [None]
  - DIARRHOEA [None]
  - DRUG HYPERSENSITIVITY [None]
  - ERYTHEMA [None]
  - HAEMORRHAGIC OVARIAN CYST [None]
  - HYPERTENSION [None]
  - SCAR [None]
  - SKIN INFLAMMATION [None]
  - SKIN NECROSIS [None]
  - SYSTEMIC LUPUS ERYTHEMATOSUS [None]
  - VASCULITIS [None]
